FAERS Safety Report 14309007 (Version 3)
Quarter: 2018Q1

REPORT INFORMATION
  Report Type: Spontaneous
  Country: US (occurrence: US)
  Receive Date: 20171220
  Receipt Date: 20180115
  Transmission Date: 20180509
  Serious: Yes (Death, Life-Threatening, Hospitalization)
  Sender: FDA-Public Use
  Company Number: US-UNITED THERAPEUTICS-UNT-2017-017822

PATIENT
  Age: 61 Year
  Sex: Female
  Weight: 126.98 kg

DRUGS (1)
  1. REMODULIN [Suspect]
     Active Substance: TREPROSTINIL
     Indication: PULMONARY ARTERIAL HYPERTENSION
     Dosage: 0.00725 ?G/KG, CONTINUING
     Route: 058
     Dates: start: 20171108

REACTIONS (2)
  - Death [Fatal]
  - Endotracheal intubation [Unknown]

NARRATIVE: CASE EVENT DATE: 20171216
